FAERS Safety Report 22609307 (Version 1)
Quarter: 2023Q2

REPORT INFORMATION
  Report Type: Report from Study
  Country: IN (occurrence: IN)
  Receive Date: 20230616
  Receipt Date: 20230616
  Transmission Date: 20230722
  Serious: Yes (Other)
  Sender: FDA-Public Use
  Company Number: IN-002147023-NVSC2022IN242791

PATIENT
  Age: 78 Year
  Sex: Female

DRUGS (1)
  1. RIBOCICLIB [Suspect]
     Active Substance: RIBOCICLIB
     Indication: Breast cancer metastatic
     Dosage: 600 MG, QD
     Route: 065
     Dates: start: 20220629

REACTIONS (22)
  - Diabetes mellitus [Unknown]
  - Sensory disturbance [Recovered/Resolved]
  - Skin hypertrophy [Unknown]
  - Toothache [Unknown]
  - Gastrooesophageal reflux disease [Recovered/Resolved]
  - Vomiting [Unknown]
  - Cough [Recovered/Resolved]
  - Decreased appetite [Recovered/Resolved]
  - Alopecia [Unknown]
  - Fatigue [Unknown]
  - Dyspnoea exertional [Recovering/Resolving]
  - White blood cell count decreased [Recovering/Resolving]
  - Haemoglobin decreased [Unknown]
  - Platelet count decreased [Unknown]
  - Nausea [Recovered/Resolved]
  - Blood creatinine increased [Unknown]
  - Dry skin [Recovering/Resolving]
  - Weight decreased [Recovering/Resolving]
  - Rhinorrhoea [Recovering/Resolving]
  - Pleural effusion [Unknown]
  - Ill-defined disorder [Unknown]
  - Mass [Unknown]

NARRATIVE: CASE EVENT DATE: 20220701
